FAERS Safety Report 16379910 (Version 1)
Quarter: 2019Q2

REPORT INFORMATION
  Report Type: Spontaneous
  Country: US (occurrence: US)
  Receive Date: 20190531
  Receipt Date: 20190531
  Transmission Date: 20190711
  Serious: No
  Sender: FDA-Public Use
  Company Number: US-SEBELA IRELAND LIMITED-2018SEB00250

PATIENT
  Sex: Female

DRUGS (1)
  1. LOTRONEX [Suspect]
     Active Substance: ALOSETRON HYDROCHLORIDE
     Indication: IRRITABLE BOWEL SYNDROME
     Dosage: UNK

REACTIONS (2)
  - Irritable bowel syndrome [Not Recovered/Not Resolved]
  - Stress [Not Recovered/Not Resolved]

NARRATIVE: CASE EVENT DATE: 20181015
